FAERS Safety Report 10444639 (Version 1)
Quarter: 2014Q3

REPORT INFORMATION
  Report Type: Spontaneous
  Country: JP (occurrence: JP)
  Receive Date: 20140910
  Receipt Date: 20140910
  Transmission Date: 20150326
  Serious: No
  Sender: FDA-Public Use
  Company Number: PHHY2014JP111137

PATIENT
  Age: 66 Year
  Sex: Female

DRUGS (3)
  1. NILOTINIB [Suspect]
     Active Substance: NILOTINIB
     Dosage: 800 MG, DAILY
  2. NILOTINIB [Suspect]
     Active Substance: NILOTINIB
     Dosage: 400 MG, DAILY
     Dates: start: 20060719
  3. NILOTINIB [Suspect]
     Active Substance: NILOTINIB
     Dosage: 400 MG, DAILY

REACTIONS (6)
  - Lipase increased [Unknown]
  - Blood glucose increased [Unknown]
  - Electrocardiogram QT prolonged [Recovering/Resolving]
  - Rash [Unknown]
  - Eczema [Unknown]
  - Blood bilirubin increased [Unknown]

NARRATIVE: CASE EVENT DATE: 200607
